FAERS Safety Report 4418130-7 (Version None)
Quarter: 2004Q3

REPORT INFORMATION
  Report Type: 
  Country: None (occurrence: None)
  Receive Date: 20040809
  Receipt Date: 20000802
  Transmission Date: 20050211
  Serious: Yes (Hospitalization)
  Sender: FDA-Public Use
  Company Number: 200020166US

PATIENT
  Sex: Female

DRUGS (26)
  1. ARAVA [Suspect]
     Indication: RHEUMATOID ARTHRITIS
     Route: 048
     Dates: start: 19990512, end: 20000717
  2. PLAQUENIL [Concomitant]
     Dates: start: 19990612
  3. IMURAN [Concomitant]
     Dates: start: 20000301, end: 20000701
  4. DEPAKOTE [Concomitant]
     Indication: MIGRAINE
     Dates: start: 19990101, end: 20000701
  5. AMBIEN [Concomitant]
     Dosage: DOSE: UNK
  6. MIACALCIN [Concomitant]
     Dosage: DOSE: UNK
  7. PRILOSEC [Concomitant]
  8. CLINORIL [Concomitant]
     Dosage: DOSE: UNK
  9. MAXZIDE [Concomitant]
     Dosage: DOSE: UNK
  10. FOSAMAX [Concomitant]
     Dosage: DOSE: UNK
  11. PREDNISONE TAB [Concomitant]
  12. PREMARIN [Concomitant]
     Dosage: DOSE: PRN
     Route: 061
  13. EFFEXOR XR [Concomitant]
  14. ULTRAM [Concomitant]
     Dosage: DOSE: UNK
  15. CHLORAL HYDRATE [Concomitant]
     Dosage: DOSE: UNK
  16. LACTULOSE [Concomitant]
     Dosage: DOSE: UNK
  17. LASIX [Concomitant]
     Dosage: DOSE: 40 (PRN)
  18. TRAZODONE HCL [Concomitant]
  19. ZYRTEC [Concomitant]
     Route: 048
  20. ESTRATAB [Concomitant]
     Dosage: DOSE: QD
  21. VITAMIN D [Concomitant]
     Dosage: DOSE: UNK
  22. MEDROL [Concomitant]
  23. REMICADE [Concomitant]
     Route: 042
     Dates: start: 20010501, end: 20031101
  24. VIVELLE [Concomitant]
     Dosage: DOSE: UNK
  25. IMITREX [Concomitant]
     Dosage: DOSE: UNK
  26. MULTIVITAMINS, PLAIN [Concomitant]
     Dosage: DOSE: UNK

REACTIONS (45)
  - ABDOMINAL PAIN [None]
  - ACUTE RESPIRATORY DISTRESS SYNDROME [None]
  - ALANINE AMINOTRANSFERASE INCREASED [None]
  - ALOPECIA [None]
  - ASPARTATE AMINOTRANSFERASE INCREASED [None]
  - BILE DUCT OBSTRUCTION [None]
  - BIOPSY LIVER ABNORMAL [None]
  - BLOOD ALKALINE PHOSPHATASE INCREASED [None]
  - BLOOD IMMUNOGLOBULIN G INCREASED [None]
  - BLOOD IMMUNOGLOBULIN M INCREASED [None]
  - BONE MARROW DEPRESSION [None]
  - CHOLECYSTITIS [None]
  - CHOLECYSTITIS CHRONIC [None]
  - CHOLESTASIS [None]
  - CYTOMEGALOVIRUS INFECTION [None]
  - DECUBITUS ULCER [None]
  - DIARRHOEA [None]
  - DIZZINESS [None]
  - FATIGUE [None]
  - FIBROSIS [None]
  - FLUID OVERLOAD [None]
  - GASTROINTESTINAL DISORDER [None]
  - GRANULOMA [None]
  - HAEMATOMA [None]
  - HEPATIC FUNCTION ABNORMAL [None]
  - HEPATIC STEATOSIS [None]
  - HEPATOMEGALY [None]
  - HYPOALBUMINAEMIA [None]
  - INFLAMMATION [None]
  - LARGE INTESTINAL ULCER [None]
  - LEUKOPENIA [None]
  - MALAISE [None]
  - MARKEDLY REDUCED DIETARY INTAKE [None]
  - MULTI-ORGAN FAILURE [None]
  - NAUSEA [None]
  - PANCYTOPENIA [None]
  - PERONEAL NERVE PALSY [None]
  - PNEUMONIA ASPERGILLUS [None]
  - POLYNEUROPATHY [None]
  - PYELONEPHRITIS ACUTE [None]
  - RENAL FAILURE [None]
  - SPLEEN DISORDER [None]
  - URINARY TRACT INFECTION [None]
  - VOCAL CORD PARALYSIS [None]
  - VOMITING [None]
